FAERS Safety Report 11315805 (Version 2)
Quarter: 2015Q3

REPORT INFORMATION
  Report Type: Spontaneous
  Country: US (occurrence: None)
  Receive Date: 20150724
  Receipt Date: 20150821
  Transmission Date: 20151125
  Serious: Yes (Other)
  Sender: FDA-Public Use
  Company Number: 1713747-2015-999222

PATIENT
  Age: 64 Year
  Sex: Male
  Weight: 95.26 kg

DRUGS (6)
  1. GABAPENTIN. [Concomitant]
     Active Substance: GABAPENTIN
  2. OMEPRAZOLE. [Concomitant]
     Active Substance: OMEPRAZOLE
  3. DELFLEX WITH DEXTROSE 2.5% LOW MAGNESIUM LOW CALCIUM [Suspect]
     Active Substance: CALCIUM CHLORIDE\DEXTROSE MONOHYDRATE\MAGNESIUM CHLORIDE\SODIUM CHLORIDE\SODIUM LACTATE
     Indication: PERITONEAL DIALYSIS
     Route: 033
  4. ZOLPIDEM TITRATE [Concomitant]
  5. NEPHRO CAP [Concomitant]
  6. LEVOTHYROXINE. [Concomitant]
     Active Substance: LEVOTHYROXINE

REACTIONS (9)
  - Device expulsion [None]
  - Fractional excretion of sodium [None]
  - Cardiac failure congestive [None]
  - Weight increased [None]
  - Cough [None]
  - Oedema peripheral [None]
  - Ischaemic cardiomyopathy [None]
  - Pleural effusion [None]
  - Peritoneal dialysis complication [None]

NARRATIVE: CASE EVENT DATE: 20150422
